FAERS Safety Report 10810597 (Version 1)
Quarter: 2015Q1

REPORT INFORMATION
  Report Type: Report from Study
  Country: US (occurrence: US)
  Receive Date: 20150217
  Receipt Date: 20150217
  Transmission Date: 20150721
  Serious: No
  Sender: FDA-Public Use
  Company Number: US-ABBVIE-14K-163-1265992-00

PATIENT
  Age: 25 Year
  Sex: Female
  Weight: 72.64 kg

DRUGS (6)
  1. DROSPIRENONE AND ETHINYL ESTRADIOL [Concomitant]
     Active Substance: DROSPIRENONE\ETHINYL ESTRADIOL
     Indication: CONTRACEPTION
  2. HUMIRA [Suspect]
     Active Substance: ADALIMUMAB
     Indication: IRIDOCYCLITIS
     Route: 065
     Dates: start: 201310, end: 2014
  3. HUMIRA [Suspect]
     Active Substance: ADALIMUMAB
     Indication: ANKYLOSING SPONDYLITIS
  4. HUMIRA [Suspect]
     Active Substance: ADALIMUMAB
     Indication: OFF LABEL USE
     Route: 065
     Dates: start: 2014
  5. ALBUTEROL. [Concomitant]
     Active Substance: ALBUTEROL
     Indication: ASTHMA
  6. DUREZOL [Concomitant]
     Active Substance: DIFLUPREDNATE
     Indication: UVEITIS

REACTIONS (6)
  - Ankylosing spondylitis [Not Recovered/Not Resolved]
  - Laryngitis [Recovered/Resolved]
  - Conjunctivitis [Recovered/Resolved]
  - Off label use [Unknown]
  - Nasopharyngitis [Recovered/Resolved]
  - Drug ineffective for unapproved indication [Not Recovered/Not Resolved]

NARRATIVE: CASE EVENT DATE: 201310
